FAERS Safety Report 14205575 (Version 2)
Quarter: 2017Q4

REPORT INFORMATION
  Report Type: Other
  Country: US (occurrence: US)
  Receive Date: 20171120
  Receipt Date: 20171201
  Transmission Date: 20180321
  Serious: Yes (Death, Other)
  Sender: FDA-Public Use
  Company Number: US-INTERCEPT-PMOCA2017001235

PATIENT

DRUGS (1)
  1. OCALIVA [Suspect]
     Active Substance: OBETICHOLIC ACID
     Indication: BILIARY CIRRHOSIS PRIMARY
     Dosage: 5 MG, QD
     Route: 048
     Dates: start: 20161021, end: 20171018

REACTIONS (8)
  - Renal neoplasm [Unknown]
  - Blood bilirubin increased [Unknown]
  - Concomitant disease progression [Unknown]
  - Cardiac failure [Unknown]
  - Renal impairment [Unknown]
  - Pulmonary oedema [Unknown]
  - Death [Fatal]
  - Malaise [Unknown]

NARRATIVE: CASE EVENT DATE: 2017
